FAERS Safety Report 8812653 (Version 7)
Quarter: 2014Q2

REPORT INFORMATION
  Report Type: Spontaneous
  Country: DK (occurrence: DK)
  Receive Date: 20120927
  Receipt Date: 20140404
  Transmission Date: 20141212
  Serious: Yes (Disabling, Other)
  Sender: FDA-Public Use
  Company Number: PHHY2012DK082679

PATIENT
  Age: 42 Year
  Sex: Female

DRUGS (3)
  1. VIBRADOX [Suspect]
     Indication: BORRELIA INFECTION
     Dosage: 200 MG, UNK
     Route: 048
     Dates: start: 20070614
  2. VIBRADOX [Suspect]
     Dosage: 100 MG, UNK
     Dates: end: 20070615
  3. CLINDAMYCIN [Suspect]
     Indication: STAPHYLOCOCCAL INFECTION
     Dosage: 300 MG, TID
     Route: 048
     Dates: start: 20070608, end: 20070616

REACTIONS (21)
  - Angioedema [Recovering/Resolving]
  - Urticaria [Recovered/Resolved]
  - Swelling face [Recovering/Resolving]
  - Local swelling [Recovering/Resolving]
  - Rash generalised [Recovering/Resolving]
  - Mouth swelling [Recovering/Resolving]
  - Lip swelling [Recovering/Resolving]
  - Abdominal pain [Recovering/Resolving]
  - Throat irritation [Recovering/Resolving]
  - Cough [Recovering/Resolving]
  - Burning sensation [Recovering/Resolving]
  - General physical health deterioration [Recovering/Resolving]
  - Neurological eyelid disorder [Recovering/Resolving]
  - Vomiting [Recovering/Resolving]
  - Pruritus [Recovering/Resolving]
  - Paraesthesia [Recovering/Resolving]
  - Malaise [Unknown]
  - Dizziness [Recovering/Resolving]
  - Pyrexia [Recovering/Resolving]
  - Headache [Recovered/Resolved]
  - Neurological symptom [Recovering/Resolving]
